FAERS Safety Report 9813024 (Version 2)
Quarter: 2014Q1

REPORT INFORMATION
  Report Type: Report from Study
  Country: FR (occurrence: FR)
  Receive Date: 20140113
  Receipt Date: 20140123
  Transmission Date: 20141002
  Serious: Yes (Hospitalization)
  Sender: FDA-Public Use
  Company Number: FR-ASTELLAS-2014EU000139

PATIENT
  Age: 40 Year
  Sex: Male

DRUGS (3)
  1. ADVAGRAF [Suspect]
     Dosage: UNK
     Route: 048
     Dates: start: 20131117
  2. CORTANCYL [Suspect]
     Dosage: UNK
     Route: 065
     Dates: start: 20131126
  3. MYCOPHENOLATE MOFETIL [Suspect]
     Dosage: UNK
     Route: 065
     Dates: start: 20131121, end: 20131127

REACTIONS (1)
  - Abscess drainage [Unknown]
